FAERS Safety Report 20252302 (Version 1)
Quarter: 2021Q4

REPORT INFORMATION
  Report Type: Spontaneous
  Country: US (occurrence: US)
  Receive Date: 20211229
  Receipt Date: 20211229
  Transmission Date: 20220303
  Serious: No
  Sender: FDA-Public Use
  Company Number: US-COOPERSURGICAL, INC.-US-2021CPS001053

PATIENT
  Age: 41 Year
  Sex: Female
  Weight: 87.528 kg

DRUGS (12)
  1. PARAGARD T 380A [Suspect]
     Active Substance: COPPER
     Indication: Contraception
     Dosage: UNK
     Route: 015
     Dates: start: 20201106
  2. SAPHRIS [Concomitant]
     Active Substance: ASENAPINE MALEATE
     Indication: Sleep disorder
     Dosage: UNK
     Route: 065
  3. KLONOPIN [Concomitant]
     Active Substance: CLONAZEPAM
     Indication: Anxiety
     Dosage: UNK
     Route: 065
  4. LAMOTRIGINE [Concomitant]
     Active Substance: LAMOTRIGINE
     Indication: Affective disorder
     Dosage: UNK
     Route: 065
  5. DULOXETINE [Concomitant]
     Active Substance: DULOXETINE
     Indication: Depression
     Dosage: UNK
     Route: 065
  6. FETZIMA [Concomitant]
     Active Substance: LEVOMILNACIPRAN HYDROCHLORIDE
     Indication: Depression
     Dosage: UNK
     Route: 065
  7. CANNABIS SATIVA SUBSP. INDICA TOP [Concomitant]
     Active Substance: CANNABIS SATIVA SUBSP. INDICA TOP
     Indication: Back pain
     Dosage: UNK
     Route: 065
  8. SPIRONOLACTONE [Concomitant]
     Active Substance: SPIRONOLACTONE
     Indication: Acne
     Dosage: UNK
     Route: 065
  9. AZELAIC ACID [Concomitant]
     Active Substance: AZELAIC ACID
     Indication: Acne
     Dosage: UNK
     Route: 065
  10. TRETINOIN [Concomitant]
     Active Substance: TRETINOIN
     Indication: Acne
     Dosage: UNK
     Route: 065
  11. ATENOLOL [Concomitant]
     Active Substance: ATENOLOL
     Indication: Heart rate increased
     Dosage: UNK
     Route: 065
  12. ADDERALL [Concomitant]
     Active Substance: AMPHETAMINE ASPARTATE\AMPHETAMINE SULFATE\DEXTROAMPHETAMINE SACCHARATE\DEXTROAMPHETAMINE SULFATE
     Indication: Attention deficit hyperactivity disorder
     Dosage: UNK
     Route: 065

REACTIONS (1)
  - Device dislocation [Not Recovered/Not Resolved]

NARRATIVE: CASE EVENT DATE: 20201201
